FAERS Safety Report 6614547-0 (Version None)
Quarter: 2010Q1

REPORT INFORMATION
  Report Type: 
  Country: None (occurrence: None)
  Receive Date: 20100304
  Receipt Date: 20100304
  Transmission Date: 20100710
  Serious: No
  Sender: FDA-Public Use
  Company Number: None

PATIENT
  Sex: Female
  Weight: 102.0593 kg

DRUGS (1)
  1. LYRICA [Suspect]
     Indication: NEURALGIA
     Dosage: 1 - CAPSULE TWICE DAILY TRIAL CARD QTY: 14
     Dates: start: 20091121

REACTIONS (5)
  - ARTHRALGIA [None]
  - DYSSTASIA [None]
  - JOINT STIFFNESS [None]
  - LIP SWELLING [None]
  - OEDEMA PERIPHERAL [None]
